FAERS Safety Report 6358813-5 (Version None)
Quarter: 2009Q3

REPORT INFORMATION
  Report Type: 
  Country: None (occurrence: None)
  Receive Date: 20090916
  Receipt Date: 20090717
  Transmission Date: 20100115
  Serious: No
  Sender: FDA-Public Use
  Company Number: US-ABBOTT-09P-163-0586712-00

PATIENT
  Age: 38 Year
  Sex: Male

DRUGS (1)
  1. TRILIPIX [Suspect]
     Indication: BLOOD TRIGLYCERIDES INCREASED
     Dates: start: 20090603, end: 20090701

REACTIONS (1)
  - BLOOD CREATINE PHOSPHOKINASE INCREASED [None]
